FAERS Safety Report 18734370 (Version 1)
Quarter: 2021Q1

REPORT INFORMATION
  Report Type: Spontaneous
  Country: US (occurrence: US)
  Receive Date: 20210112
  Receipt Date: 20210112
  Transmission Date: 20210419
  Serious: Yes (Life-Threatening, Hospitalization)
  Sender: FDA-Public Use
  Company Number: None

PATIENT
  Age: 65 Year
  Sex: Male
  Weight: 101.9 kg

DRUGS (9)
  1. XOFLUZA 40MG ONCE [Concomitant]
     Dates: start: 20201210, end: 20201210
  2. METHYLPREDNISOLONE DOSEPAK [Concomitant]
     Dates: start: 20201213
  3. HYDROXYCHLOROQUINE 400MG DAILY [Concomitant]
  4. CASIRIVIMAB/IMDEVIMAB [Suspect]
     Active Substance: CASIRIVIMAB\IMDEVIMAB
     Indication: COVID-19
     Dosage: ?          OTHER FREQUENCY:ONCE;?
     Route: 042
     Dates: start: 20201217, end: 20201217
  5. TAMSULOSIN 0.4MG DAILY [Concomitant]
  6. AMLODIPINE?OLMESARTAN 5MG?20MG DAILY [Concomitant]
  7. ZINC SULFATE 220MG DAILY [Concomitant]
     Dates: start: 20201215
  8. XARELTO 10MG DAILY [Concomitant]
  9. AZITHROMYCIN 250MG DAILY [Concomitant]
     Dates: start: 20201213

REACTIONS (6)
  - Blood pressure increased [None]
  - Oxygen saturation decreased [None]
  - Blood lactic acid increased [None]
  - Confusional state [None]
  - Respiratory distress [None]
  - Fall [None]

NARRATIVE: CASE EVENT DATE: 20201218
